FAERS Safety Report 9769488 (Version 1)
Quarter: 2013Q4

REPORT INFORMATION
  Report Type: Spontaneous
  Country: US (occurrence: None)
  Receive Date: 20131217
  Receipt Date: 20131217
  Transmission Date: 20140711
  Serious: Yes (Other)
  Sender: FDA-Public Use
  Company Number: None

PATIENT
  Age: 80 Year
  Sex: Male
  Weight: 61.9 kg

DRUGS (3)
  1. BEVACIZUMAB [Suspect]
  2. CARBOPLATIN [Suspect]
  3. TAXOL [Suspect]

REACTIONS (7)
  - Asthenia [None]
  - Neutropenia [None]
  - General physical health deterioration [None]
  - Septic shock [None]
  - Lobar pneumonia [None]
  - Cough [None]
  - Respiratory distress [None]
